FAERS Safety Report 11572243 (Version 1)
Quarter: 2015Q3

REPORT INFORMATION
  Report Type: Spontaneous
  Country: RW (occurrence: RW)
  Receive Date: 20150929
  Receipt Date: 20150929
  Transmission Date: 20151125
  Serious: Yes (Other)
  Sender: FDA-Public Use
  Company Number: RW-PFIZER INC-2015315831

PATIENT
  Age: 57 Year
  Sex: Male

DRUGS (4)
  1. ATAZANAVIR [Interacting]
     Active Substance: ATAZANAVIR
     Indication: ANTIRETROVIRAL THERAPY
     Dosage: UNK
  2. FLUCONAZOLE. [Suspect]
     Active Substance: FLUCONAZOLE
     Dosage: UNK
  3. ABACAVIR. [Interacting]
     Active Substance: ABACAVIR
     Indication: ANTIRETROVIRAL THERAPY
  4. RITONAVIR. [Interacting]
     Active Substance: RITONAVIR
     Indication: ANTIRETROVIRAL THERAPY

REACTIONS (2)
  - Acute hepatic failure [Unknown]
  - Drug interaction [Unknown]
